FAERS Safety Report 8920310 (Version 2)
Quarter: 2013Q1

REPORT INFORMATION
  Report Type: Spontaneous
  Country: GB (occurrence: GB)
  Receive Date: 20121122
  Receipt Date: 20130321
  Transmission Date: 20140127
  Serious: Yes (Death, Other)
  Sender: FDA-Public Use
  Company Number: PHHY2012GB105808

PATIENT
  Age: 62 Year
  Sex: Male

DRUGS (3)
  1. SIMVASTATIN [Suspect]
     Indication: BLOOD CHOLESTEROL INCREASED
     Dosage: 40 MG, UNK
     Route: 048
     Dates: start: 201202, end: 201203
  2. OLANZAPINE [Concomitant]
     Indication: MAJOR DEPRESSION
     Dosage: 15 MG, UNK
     Route: 048
     Dates: start: 201110
  3. MIRTAZAPINE [Concomitant]
     Indication: MAJOR DEPRESSION
     Route: 048
     Dates: start: 201110

REACTIONS (2)
  - Completed suicide [Fatal]
  - Depression [Unknown]
